FAERS Safety Report 15788245 (Version 1)
Quarter: 2019Q1

REPORT INFORMATION
  Report Type: Spontaneous
  Country: US (occurrence: US)
  Receive Date: 20190104
  Receipt Date: 20190104
  Transmission Date: 20190417
  Serious: No
  Sender: FDA-Public Use
  Company Number: US-DSJP-DSU-2017-149507

PATIENT

DRUGS (2)
  1. BENICAR HCT [Suspect]
     Active Substance: HYDROCHLOROTHIAZIDE\OLMESARTAN MEDOXOMIL
     Dosage: 40/12.5MG DAILY
     Route: 048
     Dates: start: 20141205, end: 20170815
  2. BENICAR HCT [Suspect]
     Active Substance: HYDROCHLOROTHIAZIDE\OLMESARTAN MEDOXOMIL
     Indication: HYPERTENSION
     Dosage: 40/25 MG DAILY
     Route: 048
     Dates: start: 20141205, end: 20170815

REACTIONS (3)
  - Sprue-like enteropathy [Recovering/Resolving]
  - Rectal haemorrhage [Unknown]
  - Gastric polyps [Unknown]

NARRATIVE: CASE EVENT DATE: 20141205
